FAERS Safety Report 6969031-1 (Version None)
Quarter: 2010Q3

REPORT INFORMATION
  Report Type: 
  Country: None (occurrence: None)
  Receive Date: 20100903
  Receipt Date: 20100903
  Transmission Date: 20110219
  Serious: Yes (Other)
  Sender: FDA-Public Use
  Company Number: None

PATIENT
  Age: 8 Year
  Sex: Male
  Weight: 49 kg

DRUGS (1)
  1. HISTRELIN IMPLANT -SUPPERLIN LA- 50 MG ENDO PHARMACEUTICALS [Suspect]
     Indication: PRECOCIOUS PUBERTY
     Dosage: 50 MG YEARLY ID
     Dates: start: 20090612, end: 20100830

REACTIONS (1)
  - COMPLICATION OF DEVICE REMOVAL [None]
